FAERS Safety Report 13534622 (Version 1)
Quarter: 2017Q2

REPORT INFORMATION
  Report Type: Spontaneous
  Country: US (occurrence: US)
  Receive Date: 20170511
  Receipt Date: 20170511
  Transmission Date: 20170830
  Serious: No
  Sender: FDA-Public Use
  Company Number: US-MYLANLABS-2017M1009604

PATIENT
  Age: 15 Year
  Sex: Female
  Weight: 71.2 kg

DRUGS (1)
  1. XULANE [Suspect]
     Active Substance: ETHINYL ESTRADIOL\NORELGESTROMIN
     Indication: CONTRACEPTION
     Dosage: 150/35UG/DAY, CHANGING THE PATCH QWEEKLY FOR 3 WEEKS AND THEN OFF A WEEK
     Route: 062
     Dates: start: 201701, end: 20170207

REACTIONS (2)
  - Application site dermatitis [Recovered/Resolved]
  - Hypersensitivity [Not Recovered/Not Resolved]

NARRATIVE: CASE EVENT DATE: 201701
